FAERS Safety Report 15311265 (Version 2)
Quarter: 2024Q4

REPORT INFORMATION
  Report Type: Spontaneous
  Country: MX (occurrence: MX)
  Receive Date: 20180823
  Receipt Date: 20241219
  Transmission Date: 20250114
  Serious: Yes (Other)
  Sender: MERCK
  Company Number: MX-009507513-1808MEX008856

PATIENT

DRUGS (1)
  1. INVANZ [Suspect]
     Active Substance: ERTAPENEM SODIUM
     Dosage: UNK
     Route: 042

REACTIONS (2)
  - Application site necrosis [Unknown]
  - Oedema peripheral [Unknown]
